FAERS Safety Report 6147438-2 (Version None)
Quarter: 2009Q2

REPORT INFORMATION
  Report Type: 
  Country: None (occurrence: None)
  Receive Date: 20090402
  Receipt Date: 20090319
  Transmission Date: 20091009
  Serious: Yes (Hospitalization)
  Sender: FDA-Public Use
  Company Number: 2009S1005287

PATIENT
  Age: 81 Year
  Sex: Female
  Weight: 76.5 kg

DRUGS (9)
  1. BISOPROLOL FUMARATE [Suspect]
     Indication: HYPERTENSION
     Dosage: 2.5 MG, TWICE A DAY, ORAL
     Route: 048
     Dates: start: 20000101, end: 20081113
  2. PENTAERYTHIRITOL TETRANITRATE TAB [Suspect]
     Indication: CORONARY ARTERY DISEASE
     Dosage: 80 MG ORAL
     Route: 048
     Dates: start: 20020101, end: 20081114
  3. SELEGILINE (SELEGILINE) [Suspect]
     Indication: PARKINSON'S DISEASE
     Dosage: 5 MG TWICE A DAY ORAL
     Route: 048
     Dates: start: 20070101
  4. RAMIPLUS AL [Concomitant]
  5. ACETYLSALICYLIC ACID SRT [Concomitant]
  6. SIMVABETA [Concomitant]
  7. REQUIP [Concomitant]
  8. MAGNETRANS [Concomitant]
  9. DOPPELHERZ [Concomitant]

REACTIONS (2)
  - BRADYCARDIA [None]
  - HYPOTENSION [None]
